FAERS Safety Report 15983763 (Version 1)
Quarter: 2019Q1

REPORT INFORMATION
  Report Type: Spontaneous
  Country: US (occurrence: US)
  Receive Date: 20190128
  Receipt Date: 20190128
  Transmission Date: 20190418
  Serious: Yes (Life-Threatening, Hospitalization)
  Sender: FDA-Public Use
  Company Number: None

PATIENT

DRUGS (10)
  1. SEROQUEL [Suspect]
     Active Substance: QUETIAPINE FUMARATE
  2. PAXIL [Suspect]
     Active Substance: PAROXETINE HYDROCHLORIDE
  3. NAPROXEN. [Suspect]
     Active Substance: NAPROXEN
  4. ADDERALL [Suspect]
     Active Substance: AMPHETAMINE ASPARTATE\AMPHETAMINE SULFATE\DEXTROAMPHETAMINE SACCHARATE\DEXTROAMPHETAMINE SULFATE
  5. HYDROXYZINE [Suspect]
     Active Substance: HYDROXYZINE HYDROCHLORIDE
  6. TRAZODONE [Suspect]
     Active Substance: TRAZODONE HYDROCHLORIDE
  7. METHOCARBAMOL. [Suspect]
     Active Substance: METHOCARBAMOL
     Route: 048
  8. TOPAMAX [Suspect]
     Active Substance: TOPIRAMATE
  9. PROZAC [Suspect]
     Active Substance: FLUOXETINE HYDROCHLORIDE
  10. LEXAPRO [Suspect]
     Active Substance: ESCITALOPRAM OXALATE

REACTIONS (3)
  - Dyspnoea [None]
  - Adverse event [None]
  - Suicidal ideation [None]

NARRATIVE: CASE EVENT DATE: 20190102
